FAERS Safety Report 5454015-5 (Version None)
Quarter: 2007Q3

REPORT INFORMATION
  Report Type: 
  Country: None (occurrence: None)
  Receive Date: 20070917
  Receipt Date: 20070228
  Transmission Date: 20080115
  Serious: No
  Sender: FDA-Public Use
  Company Number: US-ASTRAZENECA-2006UW07011

PATIENT
  Age: 14324 Day
  Sex: Male
  Weight: 81.8 kg

DRUGS (5)
  1. SEROQUEL [Suspect]
     Indication: BIPOLAR DISORDER
     Route: 048
     Dates: start: 20010101
  2. SEROQUEL [Suspect]
     Indication: INSOMNIA
     Route: 048
     Dates: start: 20010101
  3. SEROQUEL [Suspect]
     Indication: BIPOLAR I DISORDER
     Route: 048
     Dates: start: 20010101
  4. RISPERDAL [Concomitant]
     Dates: start: 19980101
  5. ZYPREXA [Concomitant]
     Dates: start: 20010101

REACTIONS (2)
  - CYSTITIS [None]
  - TYPE 2 DIABETES MELLITUS [None]
